FAERS Safety Report 23423780 (Version 1)
Quarter: 2024Q1

REPORT INFORMATION
  Report Type: Spontaneous
  Country: US (occurrence: US)
  Receive Date: 20240119
  Receipt Date: 20240119
  Transmission Date: 20240409
  Serious: No
  Sender: FDA-Public Use
  Company Number: US-SA-SAC20240116001377

PATIENT
  Sex: Female
  Weight: 89.8 kg

DRUGS (1)
  1. DUPIXENT [Suspect]
     Active Substance: DUPILUMAB
     Indication: Illness
     Dosage: 300 MG, EVERY 14 DAYS
     Route: 058

REACTIONS (2)
  - Arthralgia [Unknown]
  - Product use in unapproved indication [Unknown]
